FAERS Safety Report 18651248 (Version 1)
Quarter: 2020Q4

REPORT INFORMATION
  Report Type: Spontaneous
  Country: US (occurrence: US)
  Receive Date: 20201223
  Receipt Date: 20201223
  Transmission Date: 20210114
  Serious: Yes (Hospitalization)
  Sender: FDA-Public Use
  Company Number: US-SA-2020SA363798

PATIENT

DRUGS (1)
  1. DUPIXENT [Suspect]
     Active Substance: DUPILUMAB
     Dosage: 300 MG (FREQUENCY: OTHER)
     Route: 058
     Dates: start: 202009

REACTIONS (3)
  - Contusion [Unknown]
  - Swelling face [Unknown]
  - Road traffic accident [Unknown]

NARRATIVE: CASE EVENT DATE: 20201216
